FAERS Safety Report 12328448 (Version 1)
Quarter: 2016Q2

REPORT INFORMATION
  Report Type: Spontaneous
  Country: US (occurrence: US)
  Receive Date: 20160503
  Receipt Date: 20160503
  Transmission Date: 20160815
  Serious: No
  Sender: FDA-Public Use
  Company Number: US-BEH-2014047403

PATIENT
  Sex: Female
  Weight: 91 kg

DRUGS (36)
  1. ACETAMINOPHEN. [Concomitant]
     Active Substance: ACETAMINOPHEN
  2. EPI-PEN AUTOINJECTOR [Concomitant]
  3. DILTIAZEM [Concomitant]
     Active Substance: DILTIAZEM
  4. OMEGA-3 EC [Concomitant]
     Dosage: SOFTGEL
  5. LEVAQUIN [Concomitant]
     Active Substance: LEVOFLOXACIN
  6. PROMETHAZINE [Concomitant]
     Active Substance: PROMETHAZINE\PROMETHAZINE HYDROCHLORIDE
  7. DUONEB [Concomitant]
     Active Substance: ALBUTEROL SULFATE\IPRATROPIUM BROMIDE
     Dosage: 0.5 MG-3 MG/3 ML SOLN
  8. ARALAST NP [Concomitant]
     Active Substance: .ALPHA.1-PROTEINASE INHIBITOR HUMAN
  9. SINGULAIR [Concomitant]
     Active Substance: MONTELUKAST SODIUM
  10. DULERA [Concomitant]
     Active Substance: FORMOTEROL FUMARATE DIHYDRATE\MOMETASONE FUROATE
  11. IBUPROFEN. [Concomitant]
     Active Substance: IBUPROFEN
  12. ALBUTEROL SULF HFA [Concomitant]
     Dosage: 90 MCG INH
  13. HIZENTRA [Suspect]
     Active Substance: HUMAN IMMUNOGLOBULIN G
     Route: 058
  14. DIPHENHYDRAMINE. [Concomitant]
     Active Substance: DIPHENHYDRAMINE
  15. METFORMIN HYDROCHLORIDE. [Concomitant]
     Active Substance: METFORMIN HYDROCHLORIDE
  16. ACETAMINOPHEN\HYDROCODONE BITARTRATE [Concomitant]
     Active Substance: ACETAMINOPHEN\HYDROCODONE BITARTRATE
     Dosage: 7.5-325
  17. BYSTOLIC [Concomitant]
     Active Substance: NEBIVOLOL HYDROCHLORIDE
  18. MULTIVITAMINS [Concomitant]
     Active Substance: VITAMINS
  19. XANAX [Concomitant]
     Active Substance: ALPRAZOLAM
  20. EXCEDRIN MIGRAINE [Concomitant]
     Active Substance: ACETAMINOPHEN\ASPIRIN\CAFFEINE
     Dosage: CAPLET
  21. MAALOX ADVANCED SUSPENSION [Concomitant]
  22. RANITIDINE. [Concomitant]
     Active Substance: RANITIDINE
  23. SUMATRIPTAN. [Concomitant]
     Active Substance: SUMATRIPTAN
  24. SUPER B COMPLEX-C [Concomitant]
     Dosage: CAPLET
  25. HIZENTRA [Suspect]
     Active Substance: HUMAN IMMUNOGLOBULIN G
     Indication: HYPOGAMMAGLOBULINAEMIA
     Route: 058
  26. LIDOCAINE/PRILOCAINE [Concomitant]
  27. PATANASE [Concomitant]
     Active Substance: OLOPATADINE HYDROCHLORIDE
  28. ZOLPIDEM TARTRATE. [Concomitant]
     Active Substance: ZOLPIDEM TARTRATE
  29. BUTORPHANOL [Concomitant]
     Active Substance: BUTORPHANOL
     Dosage: 10 MG/ML SPRAY
  30. NASONEX [Concomitant]
     Active Substance: MOMETASONE FUROATE
  31. SUMATRIPTAN. [Concomitant]
     Active Substance: SUMATRIPTAN
  32. PHENYLEPHRINE HCL [Concomitant]
     Active Substance: PHENYLEPHRINE HYDROCHLORIDE
     Dosage: POWDER
  33. TRIAMCINOLONE [Concomitant]
     Active Substance: TRIAMCINOLONE
  34. OMEPRAZOLE DR [Concomitant]
     Active Substance: OMEPRAZOLE
  35. PROBIOTICA [Concomitant]
     Active Substance: PROBIOTICS NOS
  36. VITAMIN D3 [Concomitant]
     Active Substance: CHOLECALCIFEROL
     Dosage: 50,000 UNITS

REACTIONS (1)
  - Nausea [Recovered/Resolved]
